FAERS Safety Report 15376214 (Version 1)
Quarter: 2018Q3

REPORT INFORMATION
  Report Type: Spontaneous
  Country: GB (occurrence: CH)
  Receive Date: 20180912
  Receipt Date: 20180912
  Transmission Date: 20181010
  Serious: Yes (Hospitalization, Other)
  Sender: FDA-Public Use
  Company Number: GB-MYLANLABS-2018M1066495

PATIENT
  Age: 79 Year
  Sex: Male
  Weight: 65 kg

DRUGS (11)
  1. ASPIRIN CARDIO [Interacting]
     Active Substance: ASPIRIN
     Indication: CORONARY ARTERY DISEASE
     Dosage: 100 MG, QD, 100 MILLIGRAM DAILY; LONG TERM, CONTINUING
     Route: 048
  2. SINTROM [Interacting]
     Active Substance: ACENOCOUMAROL
     Indication: ATRIAL FIBRILLATION
     Dosage: ACCORDING INR
     Route: 065
  3. SERTRALINE [Suspect]
     Active Substance: SERTRALINE HYDROCHLORIDE
     Indication: PRODUCT USED FOR UNKNOWN INDICATION
     Dosage: UNK UKN, UNK
     Route: 065
  4. SERTRALINE [Suspect]
     Active Substance: SERTRALINE HYDROCHLORIDE
     Dosage: 50 MG, QD
     Route: 065
     Dates: end: 20140123
  5. CALCIPARINE [Interacting]
     Active Substance: HEPARIN CALCIUM
     Indication: ATRIAL FIBRILLATION
     Dosage: 25000 IU (INTERNATIONAL UNIT) DAILY;
     Route: 041
     Dates: start: 20140123, end: 20140128
  6. IRFEN [Suspect]
     Active Substance: IBUPROFEN
     Indication: PAIN
     Dosage: 400 MG, TID
     Route: 048
     Dates: start: 20140123, end: 20140130
  7. IRFEN [Suspect]
     Active Substance: IBUPROFEN
     Indication: THROMBOSIS PROPHYLAXIS
  8. CO?DIOVAN [Interacting]
     Active Substance: HYDROCHLOROTHIAZIDE\VALSARTAN
     Indication: HYPERTENSION
     Dosage: 1 DF, QD (80 MG VALS, 12.5 MG HCTZ)
     Route: 048
  9. SINTROM [Interacting]
     Active Substance: ACENOCOUMAROL
     Dosage: ACCORDING INR
     Dates: start: 20140125, end: 20140130
  10. CLEXANE [Interacting]
     Active Substance: ENOXAPARIN SODIUM
     Indication: ATRIAL FIBRILLATION
     Dosage: 80 MG, BID
     Route: 058
     Dates: start: 20140128, end: 20140130
  11. CRESTOR [Suspect]
     Active Substance: ROSUVASTATIN CALCIUM
     Indication: PRODUCT USED FOR UNKNOWN INDICATION
     Dosage: 5 MG, QD
     Route: 048

REACTIONS (11)
  - Haemorrhage [Recovered/Resolved]
  - Sensorimotor disorder [Unknown]
  - Cerebrovascular accident [Recovered/Resolved]
  - Hypotension [Unknown]
  - Ischaemic stroke [Recovered/Resolved]
  - Acute kidney injury [Recovered/Resolved]
  - Drug interaction [Unknown]
  - Quadrantanopia [Unknown]
  - Haemoglobin decreased [Recovering/Resolving]
  - Haemarthrosis [Unknown]
  - Paresis [Unknown]

NARRATIVE: CASE EVENT DATE: 20140130
